FAERS Safety Report 7979171-6 (Version None)
Quarter: 2011Q4

REPORT INFORMATION
  Report Type: 
  Country: None (occurrence: None)
  Receive Date: 20111206
  Receipt Date: 20111201
  Transmission Date: 20120403
  Serious: Yes (Other)
  Sender: FDA-Public Use
  Company Number: 2010SP007300

PATIENT
  Age: 27 Year
  Sex: Female
  Weight: 74.8435 kg

DRUGS (1)
  1. NUVARING [Suspect]
     Indication: CONTRACEPTION
     Dosage: 1 DF;VAG
     Route: 067
     Dates: start: 20070101, end: 20080101

REACTIONS (11)
  - HYPOAESTHESIA [None]
  - DEEP VEIN THROMBOSIS [None]
  - TENDONITIS [None]
  - HAEMORRHOIDS [None]
  - INFLUENZA LIKE ILLNESS [None]
  - PARAESTHESIA [None]
  - UPPER RESPIRATORY TRACT INFECTION [None]
  - ADJUSTMENT DISORDER WITH DEPRESSED MOOD [None]
  - ARTHRALGIA [None]
  - ONYCHOMYCOSIS [None]
  - SMEAR CERVIX ABNORMAL [None]
